FAERS Safety Report 21605603 (Version 1)
Quarter: 2022Q4

REPORT INFORMATION
  Report Type: Report from Study
  Country: US (occurrence: US)
  Receive Date: 20221116
  Receipt Date: 20221116
  Transmission Date: 20230113
  Serious: No
  Sender: FDA-Public Use
  Company Number: US-ABBVIE-4166741

PATIENT

DRUGS (4)
  1. RINVOQ [Suspect]
     Active Substance: UPADACITINIB
     Indication: Psoriatic arthropathy
     Dosage: ONCE
     Route: 048
  2. Pfizer BioNTech COVID-19 vaccine ( [Concomitant]
     Indication: COVID-19 immunisation
     Dosage: 3 DOSE
     Route: 030
     Dates: start: 20211118, end: 20211118
  3. Pfizer BioNTech COVID-19 vaccine ( [Concomitant]
     Indication: COVID-19 immunisation
     Dosage: 1 DOSE
     Route: 030
     Dates: start: 20210224, end: 20210224
  4. Pfizer BioNTech COVID-19 vaccine ( [Concomitant]
     Indication: COVID-19 immunisation
     Dosage: 2 DOSE
     Route: 030
     Dates: start: 20210317, end: 20210317

REACTIONS (7)
  - Oropharyngeal pain [Unknown]
  - Headache [Unknown]
  - Malaise [Unknown]
  - Fatigue [Unknown]
  - Ear pain [Unknown]
  - Swelling face [Unknown]
  - Sinus disorder [Unknown]
